FAERS Safety Report 21110371 (Version 1)
Quarter: 2022Q3

REPORT INFORMATION
  Report Type: Spontaneous
  Country: US (occurrence: None)
  Receive Date: 20220720
  Receipt Date: 20220720
  Transmission Date: 20221027
  Serious: Yes (Hospitalization)
  Sender: FDA-Public Use
  Company Number: None

PATIENT
  Sex: Female

DRUGS (6)
  1. XOLAIR [Suspect]
     Active Substance: OMALIZUMAB
     Indication: Asthma
     Dosage: OTHER QUANTITY : 75 MG/0.5ML;?FREQUENCY : EVERY OTHER WEEK;?INJECT 375 MG UNDER THE SKIN (SUBCUTANEO
     Route: 058
     Dates: start: 20220517
  2. XOLAIR [Suspect]
     Active Substance: OMALIZUMAB
     Dosage: FREQUENCY : EVERY OTHER WEEK;?
     Route: 058
  3. GILENYA [Concomitant]
     Active Substance: FINGOLIMOD HYDROCHLORIDE
  4. SODIUM BICAR [Concomitant]
  5. VALSARTAN [Concomitant]
     Active Substance: VALSARTAN
  6. XOLAIR [Concomitant]
     Active Substance: OMALIZUMAB

REACTIONS (2)
  - Therapy interrupted [None]
  - Hospitalisation [None]
